FAERS Safety Report 8498832-6 (Version None)
Quarter: 2012Q3

REPORT INFORMATION
  Report Type: 
  Country: None (occurrence: None)
  Receive Date: 20120710
  Receipt Date: 20120703
  Transmission Date: 20120928
  Serious: Yes (Hospitalization, Other)
  Sender: FDA-Public Use
  Company Number: AU-AMGEN-AUSSP2012034083

PATIENT
  Age: 76 Year
  Sex: Male

DRUGS (8)
  1. CALCIUM CARBONATE [Concomitant]
     Dosage: 1200 MG, UNK
  2. VITAMIN D [Concomitant]
     Indication: PROPHYLAXIS
     Route: 048
  3. CHOLECALCIFEROL [Concomitant]
     Dosage: UNK UNIT, UNK
  4. ORTERONEL [Concomitant]
     Indication: PROSTATE CANCER
     Dosage: UNK
     Dates: end: 20120318
  5. IRBESARTAN + HYDROCHLOROTHIAZIDE [Concomitant]
     Dosage: UNK
     Dates: end: 20120325
  6. XGEVA [Suspect]
     Indication: PROSTATE CANCER METASTATIC
     Dosage: 120 MG, Q4WK
     Route: 058
     Dates: start: 20120201
  7. CALCIUM [Concomitant]
  8. ZOLADEX [Concomitant]
     Dosage: 10.8 MG, Q3MO

REACTIONS (2)
  - HYPOCALCAEMIA [None]
  - HUNGRY BONE SYNDROME [None]
